FAERS Safety Report 24290922 (Version 2)
Quarter: 2024Q3

REPORT INFORMATION
  Report Type: Spontaneous
  Country: JP (occurrence: JP)
  Receive Date: 20240906
  Receipt Date: 20240917
  Transmission Date: 20241016
  Serious: Yes (Other)
  Sender: RECORDATI
  Company Number: JP-ORPHANEU-2024006791

PATIENT

DRUGS (4)
  1. DACTINOMYCIN [Suspect]
     Active Substance: DACTINOMYCIN
     Indication: Embryonal rhabdomyosarcoma
     Dosage: 0.045 MG PER KILOGRAM PER DAY, (MAX 2.5 MG/DAY) EIGHT CYCLES (24 WEEKS)
  2. VINCRISTINE [Suspect]
     Active Substance: VINCRISTINE
     Indication: Embryonal rhabdomyosarcoma
     Dosage: 1.5 MG PER SQUARE METER (MAX 2.5 MG/DAY), EIGHT CYCLES (24 WEEKS)
  3. CYCLOPHOSPHAMIDE [Suspect]
     Active Substance: CYCLOPHOSPHAMIDE
     Indication: Embryonal rhabdomyosarcoma
     Dosage: 1.2 GRAM/SQUARE METER/CYCLE (30 MIN DRIP) 24 WEEKS (TOTAL CUMULATIVE DOSE, 9.6 G/M2)
  4. SULFAMETHOXAZOLE AND TRIMETHOPRIM [Concomitant]
     Active Substance: SULFAMETHOXAZOLE\TRIMETHOPRIM
     Indication: Prophylaxis
     Dosage: UNK

REACTIONS (4)
  - Liver disorder [Recovered/Resolved]
  - Weight increased [Recovered/Resolved]
  - Venoocclusive disease [Recovered/Resolved]
  - Neutropenia [Unknown]
